FAERS Safety Report 5201855-3 (Version None)
Quarter: 2006Q4

REPORT INFORMATION
  Report Type: 
  Country: None (occurrence: None)
  Receive Date: 20061003
  Receipt Date: 20060726
  Transmission Date: 20070319
  Serious: Yes (Other)
  Sender: FDA-Public Use
  Company Number: 2006-0009816

PATIENT
  Age: 63 Year
  Sex: Male
  Weight: 75.7507 kg

DRUGS (11)
  1. TRUVADA [Suspect]
     Indication: HIV INFECTION
     Dosage: 1 DOSAGE FORMS, 1 IN 1 D, ORAL
     Route: 048
     Dates: start: 20060303, end: 20060502
  2. REYATAZ [Concomitant]
  3. NORVIR [Concomitant]
  4. WELLBUTRIN XL [Concomitant]
  5. REMERON [Concomitant]
  6. LISINOPRIL [Concomitant]
  7. ANDROGEL (TESTOSTERONE) (GEL) [Concomitant]
  8. METHADONE HCL [Concomitant]
  9. LYRICA [Concomitant]
  10. METOCLOPRAMIDE [Concomitant]
  11. TRAZODONE HCL [Concomitant]

REACTIONS (1)
  - RENAL FAILURE ACUTE [None]
